FAERS Safety Report 8153088-9 (Version None)
Quarter: 2012Q1

REPORT INFORMATION
  Report Type: 
  Country: None (occurrence: None)
  Receive Date: 20120221
  Receipt Date: 20120214
  Transmission Date: 20120608
  Serious: Yes (Life-Threatening)
  Sender: FDA-Public Use
  Company Number: US-ASTELLAS-2012US001848

PATIENT
  Age: 59 Year
  Sex: Female

DRUGS (3)
  1. MYCAMINE [Suspect]
     Indication: FUNGAL TEST POSITIVE
     Dosage: 100 MG, UNKNOWN/D
     Route: 042
     Dates: start: 20120205
  2. MYCAMINE [Suspect]
     Dosage: UNK
     Route: 042
     Dates: end: 20120212
  3. MYCAMINE [Suspect]
     Dosage: 1/2 DOSE
     Route: 042
     Dates: start: 20120209

REACTIONS (3)
  - NEUTROPENIA [None]
  - BLOOD BILIRUBIN INCREASED [None]
  - CARDIAC ARREST [None]
